FAERS Safety Report 21549146 (Version 1)
Quarter: 2022Q4

REPORT INFORMATION
  Report Type: Spontaneous
  Country: US (occurrence: None)
  Receive Date: 20221102
  Receipt Date: 20221102
  Transmission Date: 20230112
  Serious: Yes (Hospitalization)
  Sender: FDA-Public Use
  Company Number: None

PATIENT
  Sex: 0

DRUGS (1)
  1. NUTROPIN [Suspect]
     Active Substance: SOMATROPIN

REACTIONS (2)
  - Chest pain [None]
  - Diarrhoea [None]
